FAERS Safety Report 6687341-2 (Version None)
Quarter: 2010Q2

REPORT INFORMATION
  Report Type: 
  Country: None (occurrence: None)
  Receive Date: 20100419
  Receipt Date: 20100406
  Transmission Date: 20101027
  Serious: Yes (Hospitalization)
  Sender: FDA-Public Use
  Company Number: FR-ELI_LILLY_AND_COMPANY-FR200906004851

PATIENT
  Age: 72 Year
  Sex: Male

DRUGS (11)
  1. ZYPREXA [Suspect]
     Dosage: 5 MG, UNK
     Route: 048
     Dates: end: 20090401
  2. PROCORALAN [Concomitant]
     Dosage: 2 D/F, 2/D
     Route: 048
  3. COVERSYL [Concomitant]
     Dosage: 4 MG, DAILY (1/D)
     Route: 048
  4. AMLOR [Concomitant]
     Dosage: 5 MG, DAILY (1/D)
     Route: 048
  5. NOCTRAN 10 [Concomitant]
     Dosage: 10 MG, DAILY (1/D)
     Route: 048
  6. PARKINANE LP [Concomitant]
     Dosage: 5 MG, DAILY (1/D)
     Route: 048
  7. ATARAX [Concomitant]
     Dosage: 100 MG, DAILY (1/D)
     Route: 048
  8. INEGY [Concomitant]
     Dosage: 1 D/F, DAILY (1/D)
     Route: 048
  9. MYSOLINE [Concomitant]
     Dosage: 250 MG, DAILY (1/D)
     Route: 048
  10. TRINITRINE [Concomitant]
     Dosage: 10 MG, UNK
     Route: 062
  11. PLAVIX [Concomitant]
     Dosage: 75 MG, DAILY (1/D)
     Route: 048

REACTIONS (5)
  - DYSKINESIA [None]
  - DYSPNOEA AT REST [None]
  - EXTENSOR PLANTAR RESPONSE [None]
  - MALAISE [None]
  - PHOTOPHOBIA [None]
